FAERS Safety Report 5711656-5 (Version None)
Quarter: 2008Q2

REPORT INFORMATION
  Report Type: 
  Country: None (occurrence: None)
  Receive Date: 20080416
  Receipt Date: 20080404
  Transmission Date: 20081010
  Serious: Yes (Hospitalization, Other)
  Sender: FDA-Public Use
  Company Number: 2008SP005251

PATIENT
  Age: 12 Year
  Sex: Male
  Weight: 25 kg

DRUGS (3)
  1. PEGINTERFERON ALFA-2B (S-P) (PEGINTERFERON ALFA-2B) [Suspect]
     Indication: METASTASES TO LUNG
     Dosage: 16,5 MCG UNK ; 33 MCG UNK ; 27 MCG UNK
     Dates: end: 20080307
  2. PEGINTERFERON ALFA-2B (S-P) (PEGINTERFERON ALFA-2B) [Suspect]
     Indication: METASTASES TO LUNG
     Dosage: 16,5 MCG UNK ; 33 MCG UNK ; 27 MCG UNK
     Dates: start: 20070511
  3. PEGINTERFERON ALFA-2B (S-P) (PEGINTERFERON ALFA-2B) [Suspect]
     Indication: METASTASES TO LUNG
     Dosage: 16,5 MCG UNK ; 33 MCG UNK ; 27 MCG UNK
     Dates: start: 20080111

REACTIONS (6)
  - ARTHRITIS BACTERIAL [None]
  - CENTRAL LINE INFECTION [None]
  - DEVICE RELATED INFECTION [None]
  - IMMUNOSUPPRESSION [None]
  - STAPHYLOCOCCAL INFECTION [None]
  - WEIGHT DECREASED [None]
